FAERS Safety Report 15517481 (Version 1)
Quarter: 2018Q4

REPORT INFORMATION
  Report Type: Report from Study
  Country: US (occurrence: US)
  Receive Date: 20181017
  Receipt Date: 20181017
  Transmission Date: 20190205
  Serious: No
  Sender: FDA-Public Use
  Company Number: PHHY2018US126679

PATIENT
  Sex: Male

DRUGS (1)
  1. COSENTYX [Suspect]
     Active Substance: SECUKINUMAB
     Indication: PRODUCT USED FOR UNKNOWN INDICATION
     Dosage: 150 MG, TWICE A MONTH
     Route: 058

REACTIONS (6)
  - Pruritus [Unknown]
  - Inappropriate schedule of product administration [Unknown]
  - Macule [Unknown]
  - Erythema [Unknown]
  - Skin irritation [Unknown]
  - Psoriasis [Unknown]
